FAERS Safety Report 13015591 (Version 1)
Quarter: 2016Q4

REPORT INFORMATION
  Report Type: Spontaneous
  Country: GR (occurrence: GR)
  Receive Date: 20161212
  Receipt Date: 20161212
  Transmission Date: 20170207
  Serious: Yes (Death, Hospitalization, Other)
  Sender: FDA-Public Use
  Company Number: GR-ROCHE-1865573

PATIENT

DRUGS (1)
  1. TOCILIZUMAB [Suspect]
     Active Substance: TOCILIZUMAB
     Indication: RHEUMATOID ARTHRITIS
     Route: 065

REACTIONS (23)
  - Gastrointestinal disorder [Unknown]
  - Gastrointestinal infection [Unknown]
  - Urinary tract infection [Unknown]
  - Arthritis infective [Unknown]
  - Pericarditis [Unknown]
  - Rheumatoid arthritis [Unknown]
  - Breast cancer [Unknown]
  - Drug ineffective [Unknown]
  - Sepsis [Fatal]
  - Tachyarrhythmia [Unknown]
  - Respiratory tract infection [Unknown]
  - Teratoma [Unknown]
  - Soft tissue infection [Unknown]
  - Musculoskeletal disorder [Unknown]
  - Myocardial ischaemia [Unknown]
  - Skin cancer [Unknown]
  - Thyroid cancer [Unknown]
  - Liposarcoma [Unknown]
  - Skin infection [Unknown]
  - Pulmonary embolism [Unknown]
  - Lung neoplasm malignant [Unknown]
  - Nervous system disorder [Unknown]
  - Blood disorder [Unknown]
